FAERS Safety Report 12763120 (Version 1)
Quarter: 2016Q3

REPORT INFORMATION
  Report Type: Report from Study
  Country: BR (occurrence: BR)
  Receive Date: 20160920
  Receipt Date: 20160920
  Transmission Date: 20161109
  Serious: Yes (Other)
  Sender: FDA-Public Use
  Company Number: PHHY2016BR128488

PATIENT
  Age: 51 Year
  Sex: Female
  Weight: 63.3 kg

DRUGS (2)
  1. DIOVAN [Suspect]
     Active Substance: VALSARTAN
     Indication: HYPERTENSION
     Dosage: 80 MG, QD (AFTER THE BREAKFAST)
     Route: 048
  2. DIOVAN [Suspect]
     Active Substance: VALSARTAN
     Dosage: 80 MG, UNK
     Route: 065

REACTIONS (4)
  - Blood pressure increased [Unknown]
  - Hypotension [Unknown]
  - Carotid artery stenosis [Unknown]
  - Peripheral swelling [Recovering/Resolving]

NARRATIVE: CASE EVENT DATE: 20160813
